FAERS Safety Report 7299341-2 (Version None)
Quarter: 2011Q1

REPORT INFORMATION
  Report Type: 
  Country: None (occurrence: None)
  Receive Date: 20110217
  Receipt Date: 20110214
  Transmission Date: 20110831
  Serious: Yes (Hospitalization, Congenital Anomaly)
  Sender: FDA-Public Use
  Company Number: A0882509A

PATIENT
  Sex: Male

DRUGS (2)
  1. PAXIL CR [Suspect]
     Dosage: 50MG PER DAY
     Route: 064
     Dates: start: 20020101, end: 20040101
  2. PAXIL [Suspect]
     Route: 064

REACTIONS (4)
  - MOTOR DEVELOPMENTAL DELAY [None]
  - DYSMORPHISM [None]
  - CRANIOSYNOSTOSIS [None]
  - DRUG EXPOSURE DURING PREGNANCY [None]
